FAERS Safety Report 8987550 (Version 1)
Quarter: 2012Q4

REPORT INFORMATION
  Report Type: 
  Country: VE (occurrence: VE)
  Receive Date: 20121227
  Receipt Date: 20121227
  Transmission Date: 20130627
  Serious: Yes (Other)
  Sender: FDA-Public Use
  Company Number: PHHY2012VE107459

PATIENT
  Age: 50 Year
  Sex: Female
  Weight: 58 kg

DRUGS (6)
  1. ACLASTA [Suspect]
     Indication: OSTEOPOROSIS
     Dosage: 5 mg, annual
     Route: 042
     Dates: start: 200903
  2. ACLASTA [Suspect]
     Dosage: 5 mg, annual
     Route: 042
     Dates: start: 201003
  3. ACLASTA [Suspect]
     Dosage: 5 mg, annual
     Route: 042
     Dates: start: 201103
  4. EUTHYROX [Concomitant]
     Indication: THYROIDECTOMY
     Dosage: 50 mg per day
     Route: 048
     Dates: start: 2008
  5. NORVASC [Concomitant]
     Indication: HYPERTENSION
     Dosage: 10 mg per day
     Route: 048
     Dates: start: 1987
  6. CONCOR [Concomitant]
     Indication: HYPERTENSION
     Dosage: 5 mg per day
     Route: 048
     Dates: start: 1987

REACTIONS (7)
  - Osteonecrosis of jaw [Unknown]
  - Bone disorder [Unknown]
  - Pain [Unknown]
  - Purulence [Unknown]
  - Soft tissue infection [Unknown]
  - Osteomyelitis [Unknown]
  - Procedural pain [Not Recovered/Not Resolved]
